FAERS Safety Report 8580454-X (Version None)
Quarter: 2012Q3

REPORT INFORMATION
  Report Type: 
  Country: None (occurrence: None)
  Receive Date: 20120808
  Receipt Date: 20120801
  Transmission Date: 20120928
  Serious: Yes (Other)
  Sender: FDA-Public Use
  Company Number: US-ROCHE-1096589

PATIENT
  Sex: Female

DRUGS (2)
  1. MABTHERA [Suspect]
     Indication: IMMUNE TOLERANCE INDUCTION
     Route: 042
     Dates: start: 20120703, end: 20120703
  2. BORTEZOMIB [Suspect]
     Indication: IMMUNE TOLERANCE INDUCTION

REACTIONS (4)
  - DIZZINESS [None]
  - TACHYCARDIA [None]
  - HYPERTENSION [None]
  - PARAESTHESIA ORAL [None]
